FAERS Safety Report 5713362-X (Version None)
Quarter: 2008Q2

REPORT INFORMATION
  Report Type: 
  Country: None (occurrence: None)
  Receive Date: 20080422
  Receipt Date: 20080415
  Transmission Date: 20081010
  Serious: Yes (Hospitalization)
  Sender: FDA-Public Use
  Company Number: US-GENENTECH-259556

PATIENT
  Age: 11 Year
  Sex: Female

DRUGS (1)
  1. XOLAIR [Suspect]
     Indication: DRUG USE FOR UNKNOWN INDICATION
     Dosage: UNK, UNKNOWN
     Route: 065
     Dates: start: 20080117

REACTIONS (4)
  - ANAPHYLACTIC REACTION [None]
  - CONVULSION [None]
  - CYANOSIS [None]
  - LOSS OF CONSCIOUSNESS [None]
